FAERS Safety Report 12615735 (Version 2)
Quarter: 2016Q3

REPORT INFORMATION
  Report Type: Report from Study
  Country: US (occurrence: US)
  Receive Date: 20160802
  Receipt Date: 20160822
  Transmission Date: 20161109
  Serious: Yes (Hospitalization)
  Sender: FDA-Public Use
  Company Number: US-VERTEX PHARMACEUTICALS-2016-004619

PATIENT
  Age: 16 Year
  Sex: Male

DRUGS (23)
  1. FISH OIL W/VITAMIN E [Concomitant]
  2. N-ACETYLCYSTEINE [Concomitant]
     Active Substance: ACETYLCYSTEINE
  3. PULMOZYME [Concomitant]
     Active Substance: DORNASE ALFA
  4. NOVOLOG [Concomitant]
     Active Substance: INSULIN ASPART
  5. CAYSTON [Concomitant]
     Active Substance: AZTREONAM
  6. MAGNESIUM [Concomitant]
     Active Substance: MAGNESIUM
  7. HYPERSAL [Concomitant]
  8. TOBI [Concomitant]
     Active Substance: TOBRAMYCIN
  9. VITAMIN D [Concomitant]
     Active Substance: CHOLECALCIFEROL
  10. LANTUS [Concomitant]
     Active Substance: INSULIN GLARGINE
  11. CURCUMIN [Concomitant]
     Active Substance: CURCUMIN
  12. CREON [Concomitant]
     Active Substance: PANCRELIPASE AMYLASE\PANCRELIPASE LIPASE\PANCRELIPASE PROTEASE
  13. PROAIR HFA [Concomitant]
     Active Substance: ALBUTEROL SULFATE
  14. MULTIVITAMIN [Concomitant]
     Active Substance: VITAMINS
  15. ORKAMBI [Suspect]
     Active Substance: IVACAFTOR\LUMACAFTOR
     Indication: CYSTIC FIBROSIS
     Dosage: 400-250 MG
     Route: 048
     Dates: start: 20150909
  16. VITAMIN C [Concomitant]
     Active Substance: ASCORBIC ACID
  17. VITAMIN E [Concomitant]
     Active Substance: .ALPHA.-TOCOPHEROL
  18. ALLEGRA [Concomitant]
     Active Substance: FEXOFENADINE HYDROCHLORIDE
  19. AQUADEKS [Concomitant]
     Active Substance: MINERALS\VITAMINS
  20. CULTURELLE [Concomitant]
     Active Substance: LACTOBACILLUS RHAMNOSUS
  21. ZANTAC [Concomitant]
     Active Substance: RANITIDINE HYDROCHLORIDE
  22. FLONASE [Concomitant]
     Active Substance: FLUTICASONE PROPIONATE
  23. MUCOMYST [Concomitant]
     Active Substance: ACETYLCYSTEINE

REACTIONS (3)
  - Pulmonary function test decreased [Recovering/Resolving]
  - Increased bronchial secretion [Unknown]
  - Cough [Unknown]

NARRATIVE: CASE EVENT DATE: 20150909
